FAERS Safety Report 9355343 (Version 1)
Quarter: 2013Q2

REPORT INFORMATION
  Report Type: Spontaneous
  Country: US (occurrence: US)
  Receive Date: 20130619
  Receipt Date: 20130619
  Transmission Date: 20140414
  Serious: No
  Sender: FDA-Public Use
  Company Number: US-PFIZER INC-2013183294

PATIENT
  Age: 76 Year
  Sex: Male
  Weight: 108.84 kg

DRUGS (16)
  1. LYRICA [Suspect]
     Indication: DIABETIC NEUROPATHY
     Dosage: 50 MG, 1X/DAY
     Route: 048
     Dates: start: 2013, end: 2013
  2. LYRICA [Suspect]
     Dosage: 75 MG, 1X/DAY
     Route: 048
     Dates: start: 2013
  3. GABAPENTIN [Suspect]
     Dosage: UNK
  4. PREDNISONE [Concomitant]
     Dosage: 5 MG, 1X/DAY
  5. ATENOLOL [Concomitant]
     Dosage: 5 MG, 2X/DAY
  6. ATORVASTATIN [Concomitant]
     Dosage: 80 MG, 1X/DAY
  7. AMLODIPINE [Concomitant]
     Dosage: 5 MG, 1X/DAY
  8. FUROSEMIDE [Concomitant]
     Dosage: 40 MG, UNK
  9. BUPROPION [Concomitant]
     Dosage: 100 MG, UNK
  10. INSULIN ASPART [Concomitant]
     Dosage: UNK
  11. LANTUS [Concomitant]
     Dosage: UNK
  12. ASPIRIN [Concomitant]
     Dosage: 81 MG, UNK
  13. TACROLIMUS [Concomitant]
     Dosage: 0.5 MG, 3X/DAY
  14. CELLCEPT [Concomitant]
     Dosage: 250 MG, 2X/DAY
  15. BENAZEPRIL [Concomitant]
     Dosage: 40 MG, 1X/DAY
  16. TEMAZEPAM [Concomitant]
     Dosage: 30 MG, 1X/DAY

REACTIONS (5)
  - Glycosylated haemoglobin increased [Unknown]
  - Ingrowing nail [Unknown]
  - Local swelling [Unknown]
  - Muscle swelling [Unknown]
  - Drug ineffective [Unknown]
